FAERS Safety Report 18293839 (Version 3)
Quarter: 2021Q1

REPORT INFORMATION
  Report Type: Spontaneous
  Country: US (occurrence: US)
  Receive Date: 20200921
  Receipt Date: 20210320
  Transmission Date: 20210419
  Serious: No
  Sender: FDA-Public Use
  Company Number: US-ACORDA-ACO_165934_2020

PATIENT
  Age: 66 Year
  Sex: Male

DRUGS (7)
  1. CARBIDOPA AND LEVODOPA [Concomitant]
     Active Substance: CARBIDOPA\LEVODOPA
     Indication: PRODUCT USED FOR UNKNOWN INDICATION
     Dosage: 25/100 MG, 1.5 PILLS 5?6X/DAY
     Route: 048
  2. INBRIJA [Suspect]
     Active Substance: LEVODOPA
     Indication: PARKINSON^S DISEASE
     Dosage: 84 MILLIGRAM, PRN, NOT TO EXCEED 5 DOSES A DAY
     Dates: start: 20200802
  3. SINEMET [Concomitant]
     Active Substance: CARBIDOPA\LEVODOPA
     Indication: PRODUCT USED FOR UNKNOWN INDICATION
     Dosage: 25/100 1.5 PILLS PER DOSE 4 TO 6 TIMES A DAY
     Route: 065
  4. ENTACAPONE. [Concomitant]
     Active Substance: ENTACAPONE
     Indication: PRODUCT USED FOR UNKNOWN INDICATION
     Dosage: 200 MILLIGRAM, IN CONJUNCTION WITH GENERIC SINEMET (4 TO 6 TIMES A DAY)
     Route: 065
  5. CARBIDOPA AND LEVODOPA [Concomitant]
     Active Substance: CARBIDOPA\LEVODOPA
     Dosage: 25MG/ 100 MG: THREE TABLETS THREE TIMES PER DAY
     Route: 065
  6. INBRIJA [Suspect]
     Active Substance: LEVODOPA
     Indication: ON AND OFF PHENOMENON
  7. ENTACAPONE. [Concomitant]
     Active Substance: ENTACAPONE
     Dosage: 1 PILL 5?6 X/DAYS
     Route: 065

REACTIONS (15)
  - Mobility decreased [Unknown]
  - Nervous system disorder [Unknown]
  - Cough [Unknown]
  - Device use issue [Unknown]
  - Condition aggravated [Unknown]
  - Disease progression [Unknown]
  - Withdrawal syndrome [Unknown]
  - Musculoskeletal stiffness [Unknown]
  - Therapeutic product effect delayed [Unknown]
  - Constipation [Unknown]
  - Confusional state [Unknown]
  - Device difficult to use [Unknown]
  - Vasomotor rhinitis [Not Recovered/Not Resolved]
  - Dyspepsia [Unknown]
  - Product packaging difficult to open [Unknown]

NARRATIVE: CASE EVENT DATE: 202011
